FAERS Safety Report 21019628 (Version 1)
Quarter: 2022Q2

REPORT INFORMATION
  Report Type: Spontaneous
  Country: US (occurrence: US)
  Receive Date: 20220628
  Receipt Date: 20220628
  Transmission Date: 20220721
  Serious: Yes (Other)
  Sender: FDA-Public Use
  Company Number: US-JAZZ-2022-US-005861

PATIENT
  Age: 29 Year
  Sex: Female
  Weight: 99.8 kg

DRUGS (1)
  1. XYWAV [Suspect]
     Active Substance: CALCIUM OXYBATE\MAGNESIUM OXYBATE\POTASSIUM OXYBATE\SODIUM OXYBATE
     Indication: Product used for unknown indication
     Dosage: UNK
     Route: 048
     Dates: start: 20220207

REACTIONS (4)
  - Hallucination [Unknown]
  - Confusional state [Unknown]
  - Myoclonus [Unknown]
  - Intentional product misuse [Unknown]
